FAERS Safety Report 24031249 (Version 1)
Quarter: 2024Q2

REPORT INFORMATION
  Report Type: Report from Study
  Country: CO (occurrence: CO)
  Receive Date: 20240629
  Receipt Date: 20240629
  Transmission Date: 20240717
  Serious: Yes (Death)
  Sender: FDA-Public Use
  Company Number: CO-ABBVIE-5820831

PATIENT
  Age: 88 Year
  Sex: Male

DRUGS (2)
  1. BOTOX [Suspect]
     Active Substance: BOTULINUM TOXIN TYPE A\ONABOTULINUMTOXINA
     Indication: Torticollis
     Dosage: TIME INTERVAL: AS NECESSARY: FORM STRENGTH: 200 UNIT?FREQUENCY: EVERY 3 MONTHS
     Route: 030
     Dates: start: 20220301, end: 20220301
  2. BOTOX [Suspect]
     Active Substance: BOTULINUM TOXIN TYPE A\ONABOTULINUMTOXINA
     Indication: Torticollis
     Dosage: TIME INTERVAL: AS NECESSARY: FORM STRENGTH: 200 UNIT?FREQUENCY: EVERY 3 MONTHS
     Route: 030
     Dates: start: 202312, end: 202312

REACTIONS (1)
  - Death [Fatal]

NARRATIVE: CASE EVENT DATE: 20240225
